FAERS Safety Report 15563960 (Version 1)
Quarter: 2018Q4

REPORT INFORMATION
  Report Type: Spontaneous
  Country: GB (occurrence: GB)
  Receive Date: 20181030
  Receipt Date: 20181030
  Transmission Date: 20190205
  Serious: Yes (Other)
  Sender: FDA-Public Use
  Company Number: GB-ACCORD-088898

PATIENT
  Age: 71 Year
  Sex: Female
  Weight: 76 kg

DRUGS (7)
  1. EZETIMIBE. [Concomitant]
     Active Substance: EZETIMIBE
     Dates: start: 20171215
  2. FENOFIBRATE. [Concomitant]
     Active Substance: FENOFIBRATE
     Dates: start: 20170824, end: 20171215
  3. RANITIDINE. [Concomitant]
     Active Substance: RANITIDINE
     Dates: start: 20170322
  4. CROMOGLICIC ACID [Concomitant]
     Active Substance: CROMOLYN
     Dosage: IN THE AFFECTED EYE(S)
     Route: 050
     Dates: start: 20170322
  5. MOMETASONE [Concomitant]
     Active Substance: MOMETASONE
     Dates: start: 20170322
  6. CLINITAS [Concomitant]
     Dosage: IN TO THE AFFECTED EYE/S AS NECESSARY
     Route: 050
     Dates: start: 20170322
  7. SIMVASTATIN. [Suspect]
     Active Substance: SIMVASTATIN
     Indication: PRODUCT USED FOR UNKNOWN INDICATION
     Dates: start: 20171215

REACTIONS (2)
  - Drug intolerance [Unknown]
  - Myalgia [Recovered/Resolved]

NARRATIVE: CASE EVENT DATE: 20171215
